FAERS Safety Report 14314625 (Version 2)
Quarter: 2018Q3

REPORT INFORMATION
  Report Type: Report from Study
  Country: US (occurrence: US)
  Receive Date: 20171221
  Receipt Date: 20180815
  Transmission Date: 20181010
  Serious: Yes (Hospitalization, Other)
  Sender: FDA-Public Use
  Company Number: US-TAKEDA-2017MPI009995

PATIENT
  Age: 28 Year
  Sex: Male
  Weight: 84 kg

DRUGS (8)
  1. PEGASPARGASE [Suspect]
     Active Substance: PEGASPARGASE
     Indication: PRECURSOR T-LYMPHOBLASTIC LYMPHOMA/LEUKAEMIA
     Dosage: UNK
     Route: 042
     Dates: start: 20171110
  2. VELCADE [Suspect]
     Active Substance: BORTEZOMIB
     Indication: PRECURSOR T-LYMPHOBLASTIC LYMPHOMA/LEUKAEMIA
     Dosage: 1.3 MG/M2, UNK
     Route: 042
     Dates: start: 20171107
  3. CYTARABINE. [Suspect]
     Active Substance: CYTARABINE
     Indication: PRECURSOR T-LYMPHOBLASTIC LYMPHOMA/LEUKAEMIA
     Dosage: UNK
     Route: 037
     Dates: start: 20171107
  4. DEXTROSE. [Suspect]
     Active Substance: DEXTROSE
     Indication: PRODUCT USED FOR UNKNOWN INDICATION
     Dosage: UNK
     Route: 065
  5. DAUNORUBICIN [Suspect]
     Active Substance: DAUNORUBICIN
     Indication: PRECURSOR T-LYMPHOBLASTIC LYMPHOMA/LEUKAEMIA
     Dosage: 25 MG/M2, UNK
     Route: 042
     Dates: start: 20171107
  6. DEXAMETHASONE. [Suspect]
     Active Substance: DEXAMETHASONE
     Dosage: 3 MG/M2, BID
     Route: 065
     Dates: start: 20171107
  7. VINCRISTINE [Suspect]
     Active Substance: VINCRISTINE
     Indication: PRECURSOR T-LYMPHOBLASTIC LYMPHOMA/LEUKAEMIA
     Dosage: 1.5 MG/M2, UNK
     Route: 042
     Dates: start: 20171107
  8. METHOTREXATE. [Suspect]
     Active Substance: METHOTREXATE
     Indication: PRECURSOR T-LYMPHOBLASTIC LYMPHOMA/LEUKAEMIA
     Dosage: UNK
     Route: 037
     Dates: start: 20171114

REACTIONS (4)
  - Muscular weakness [Not Recovered/Not Resolved]
  - Alanine aminotransferase increased [Not Recovered/Not Resolved]
  - Hyperglycaemia [Not Recovered/Not Resolved]
  - Headache [Not Recovered/Not Resolved]

NARRATIVE: CASE EVENT DATE: 20171107
